FAERS Safety Report 16781531 (Version 2)
Quarter: 2019Q4

REPORT INFORMATION
  Report Type: Spontaneous
  Country: US (occurrence: US)
  Receive Date: 20190906
  Receipt Date: 20191024
  Transmission Date: 20200122
  Serious: Yes (Other)
  Sender: FDA-Public Use
  Company Number: US-PFIZER INC-2019383041

PATIENT
  Age: 73 Year
  Sex: Female
  Weight: 101.13 kg

DRUGS (3)
  1. IBRANCE [Suspect]
     Active Substance: PALBOCICLIB
     Dosage: 100 MG, CYCLIC (1X A DAY FOR 21 DAYS OFF 7-START AGAIN)
     Dates: start: 201510
  2. IBRANCE [Suspect]
     Active Substance: PALBOCICLIB
     Indication: BREAST CANCER METASTATIC
     Dosage: 125 MG, UNK
  3. LETROZOLE. [Concomitant]
     Active Substance: LETROZOLE
     Dosage: 2.5 MG, UNK
     Dates: start: 201510

REACTIONS (3)
  - Thermal burn [Not Recovered/Not Resolved]
  - Hot flush [Unknown]
  - Feeling cold [Unknown]

NARRATIVE: CASE EVENT DATE: 20190719
